FAERS Safety Report 25214425 (Version 2)
Quarter: 2025Q2

REPORT INFORMATION
  Report Type: Spontaneous
  Country: IT (occurrence: IT)
  Receive Date: 20250418
  Receipt Date: 20250529
  Transmission Date: 20250716
  Serious: Yes (Other)
  Sender: PFIZER
  Company Number: IT-ROCHE-10000250128

PATIENT
  Sex: Male

DRUGS (2)
  1. BEVACIZUMAB [Suspect]
     Active Substance: BEVACIZUMAB
     Dosage: EVERY 3 WEEKS (NINTH CYCLE ON 20FEB2025)
     Dates: start: 20240903
  2. ATEZOLIZUMAB [Suspect]
     Active Substance: ATEZOLIZUMAB
     Dosage: EVERY 3 WEEKS (NINTH CYCLE ON 20FEB2025)
     Dates: start: 20240903

REACTIONS (1)
  - Myocardial ischaemia [Unknown]
